FAERS Safety Report 8006532-1 (Version None)
Quarter: 2011Q4

REPORT INFORMATION
  Report Type: 
  Country: None (occurrence: None)
  Receive Date: 20111226
  Receipt Date: 20100820
  Transmission Date: 20120403
  Serious: Yes (Death, Other)
  Sender: FDA-Public Use
  Company Number: PHHY2010US092759

PATIENT
  Age: 57 Year
  Sex: Male

DRUGS (1)
  1. EVEROLIMUS [Suspect]
     Indication: RENAL CELL CARCINOMA

REACTIONS (8)
  - ACUTE RESPIRATORY FAILURE [None]
  - DYSPNOEA [None]
  - CANDIDIASIS [None]
  - PNEUMONIA [None]
  - ACUTE RESPIRATORY DISTRESS SYNDROME [None]
  - PULMONARY ALVEOLAR HAEMORRHAGE [None]
  - LUNG INFILTRATION [None]
  - PYREXIA [None]
